FAERS Safety Report 12789735 (Version 3)
Quarter: 2017Q1

REPORT INFORMATION
  Report Type: Spontaneous
  Country: US (occurrence: US)
  Receive Date: 20160928
  Receipt Date: 20170224
  Transmission Date: 20170428
  Serious: Yes (Hospitalization)
  Sender: FDA-Public Use
  Company Number: US-JNJFOC-20160926381

PATIENT
  Sex: Male

DRUGS (1)
  1. LEVAQUIN [Suspect]
     Active Substance: LEVOFLOXACIN
     Indication: PNEUMONIA
     Route: 065

REACTIONS (6)
  - Arrhythmia [Not Recovered/Not Resolved]
  - Drug ineffective [Unknown]
  - Peripheral swelling [Unknown]
  - Malaise [Unknown]
  - Medication error [Unknown]
  - Dyspnoea [Unknown]
